FAERS Safety Report 4283590-1 (Version None)
Quarter: 2004Q1

REPORT INFORMATION
  Report Type: 
  Country: None (occurrence: None)
  Receive Date: 20040121
  Receipt Date: 20030926
  Transmission Date: 20041129
  Serious: Yes (Hospitalization)
  Sender: FDA-Public Use
  Company Number: A03200302280

PATIENT
  Age: 82 Year
  Sex: Female

DRUGS (3)
  1. PLAVIX [Suspect]
     Dosage: ORAL
     Route: 048
  2. ARANESP [Suspect]
     Indication: RENAL FAILURE CHRONIC
     Dosage: 30 MCG 1/WEEK - SUBCUTANEOUS
     Route: 058
     Dates: start: 20030701
  3. FUROSEMIDE [Concomitant]

REACTIONS (1)
  - NEUTROPENIA [None]
